FAERS Safety Report 15668258 (Version 4)
Quarter: 2019Q1

REPORT INFORMATION
  Report Type: Spontaneous
  Country: FR (occurrence: FR)
  Receive Date: 20181129
  Receipt Date: 20190222
  Transmission Date: 20190417
  Serious: Yes (Other)
  Sender: FDA-Public Use
  Company Number: FR-BRISTOL-MYERS SQUIBB COMPANY-BMS-2018-089053

PATIENT
  Age: 65 Year
  Sex: Male

DRUGS (5)
  1. HYDROXYUREA. [Interacting]
     Active Substance: HYDROXYUREA
     Indication: MYELOFIBROSIS
     Route: 065
  2. ALDARA [Interacting]
     Active Substance: IMIQUIMOD
     Indication: ACTINIC KERATOSIS
     Dosage: 1 DF, QWK (12 SACHET/WEEK)
     Route: 061
     Dates: start: 2011
  3. ACETYLSALICYLIC ACID [Concomitant]
     Active Substance: ASPIRIN
     Indication: MYELOFIBROSIS
     Route: 065
  4. ACETYLSALICYLIC ACID [Concomitant]
     Active Substance: ASPIRIN
     Indication: VASCULITIS
     Dosage: UNK
     Route: 065
  5. HYDROXYUREA. [Suspect]
     Active Substance: HYDROXYUREA
     Indication: VASCULITIS
     Dosage: UNK
     Route: 048

REACTIONS (5)
  - Thrombocytopenia [Recovered/Resolved]
  - Drug interaction [Recovered/Resolved]
  - Anaemia [Recovered/Resolved]
  - Lymphopenia [Recovered/Resolved]
  - Product use in unapproved indication [Unknown]
